FAERS Safety Report 7093029-9 (Version None)
Quarter: 2010Q4

REPORT INFORMATION
  Report Type: 
  Country: None (occurrence: None)
  Receive Date: 20101018
  Receipt Date: 20100315
  Transmission Date: 20110411
  Serious: Yes (Hospitalization)
  Sender: FDA-Public Use
  Company Number: 2010S1000164

PATIENT
  Age: 48 Year
  Sex: Female
  Weight: 53.5244 kg

DRUGS (24)
  1. DARVOCET-N 100 [Suspect]
     Indication: PAIN
     Dosage: 100 MG; Q4H; PO
     Route: 048
     Dates: start: 20080404
  2. DARVON-N [Suspect]
     Indication: PAIN
     Dosage: 100 MG; Q4H; PO
     Route: 048
     Dates: start: 20081216, end: 20090108
  3. BEVACIZUMAB [Suspect]
     Indication: BREAST CANCER
     Dosage: 540 MG; QOW; IV
     Route: 042
     Dates: start: 20081125, end: 20090109
  4. PACLITAXEL [Suspect]
     Indication: BREAST CANCER
     Dosage: 100 MG; QW; IV
     Route: 042
     Dates: start: 20081125, end: 20090109
  5. MORPHINE SULFATE [Suspect]
     Indication: PAIN
     Dosage: 30 MG; BID; PO
     Route: 048
     Dates: start: 20081107
  6. MAGIC MOUTHWASH [Concomitant]
  7. FAMCICLOVIR [Concomitant]
  8. DEXAMETHASONE [Concomitant]
  9. LORAZEPAM [Concomitant]
  10. ONDANSETRON [Concomitant]
  11. AMBIEN [Concomitant]
  12. SYNTHROID [Concomitant]
  13. MULTI-VITAMIN [Concomitant]
  14. EFFEXOR [Concomitant]
  15. METOCLOPRAMIDE [Concomitant]
  16. PROCHLORPERAZINE [Concomitant]
  17. ASORBIC ACID [Concomitant]
  18. ERGOCALCIFEROL [Concomitant]
  19. FOLIC ACID [Concomitant]
  20. NICOTINAMIDE [Concomitant]
  21. PANTHENOL [Concomitant]
  22. RETINOL [Concomitant]
  23. RIBOFLAVIN TAB [Concomitant]
  24. THIAMINE HYDROCHLORIDE [Concomitant]

REACTIONS (1)
  - CONFUSIONAL STATE [None]
